FAERS Safety Report 15343798 (Version 1)
Quarter: 2018Q3

REPORT INFORMATION
  Report Type: Spontaneous
  Country: DE (occurrence: DE)
  Receive Date: 20180903
  Receipt Date: 20180903
  Transmission Date: 20181010
  Serious: Yes (Other)
  Sender: FDA-Public Use
  Company Number: DE-BIOFRONTERA-000497

PATIENT
  Age: 54 Year
  Sex: Female

DRUGS (2)
  1. AMELUZ [Suspect]
     Active Substance: AMINOLEVULINIC ACID HYDROCHLORIDE
     Indication: BASAL CELL CARCINOMA
     Route: 061
     Dates: start: 20180407, end: 20180605
  2. DAIVOBET [Concomitant]
     Active Substance: BETAMETHASONE DIPROPIONATE\CALCIPOTRIENE

REACTIONS (1)
  - Basal cell carcinoma [Unknown]
